FAERS Safety Report 9554381 (Version 2)
Quarter: 2013Q3

REPORT INFORMATION
  Report Type: Report from Study
  Country: US (occurrence: US)
  Receive Date: 20130925
  Receipt Date: 20130925
  Transmission Date: 20140515
  Serious: Yes (Hospitalization)
  Sender: FDA-Public Use
  Company Number: US-PFIZER INC-2012310201

PATIENT
  Age: 48 Year
  Sex: Female
  Weight: 109.9 kg

DRUGS (6)
  1. BLINDED CELECOXIB [Suspect]
     Indication: COLON CANCER STAGE III
     Dosage: 400 MG, 1X/DAY
     Route: 048
     Dates: start: 20121022, end: 20121203
  2. BLINDED PLACEBO [Suspect]
     Indication: COLON CANCER STAGE III
     Dosage: 400 MG, 1X/DAY
     Route: 048
     Dates: start: 20121022, end: 20121203
  3. FLUOROURACIL [Suspect]
     Indication: COLON CANCER STAGE III
     Dosage: 400 MG/M2, IVP ON DAY 1
     Route: 042
     Dates: start: 20121008, end: 20121119
  4. FLUOROURACIL [Suspect]
     Dosage: 2400 MG/M2 IV OVER 46-48 HOURS ON DAY 1
     Route: 042
     Dates: start: 20121008, end: 20121119
  5. ELOXATIN [Suspect]
     Indication: COLON CANCER STAGE III
     Dosage: 85 MG/M2, IV OVER 2 HOURS ON DAY 1
     Route: 042
     Dates: start: 20121008, end: 20121119
  6. LEUCOVORIN CALCIUM [Suspect]
     Indication: COLON CANCER STAGE III
     Dosage: 400 MG/M2, IV OVER 2 HOURS ON DAY 1
     Route: 042
     Dates: start: 20121008, end: 20121119

REACTIONS (1)
  - Embolism [Recovering/Resolving]
